FAERS Safety Report 6330092-4 (Version None)
Quarter: 2009Q3

REPORT INFORMATION
  Report Type: 
  Country: None (occurrence: None)
  Receive Date: 20090827
  Receipt Date: 20090821
  Transmission Date: 20100115
  Serious: Yes (Other)
  Sender: FDA-Public Use
  Company Number: US-BIOGENIDEC-2009BI014478

PATIENT
  Age: 55 Year
  Sex: Male

DRUGS (1)
  1. TYSABRI [Suspect]
     Indication: MULTIPLE SCLEROSIS
     Route: 042
     Dates: start: 20090211

REACTIONS (6)
  - ASTHENIA [None]
  - CONVULSION [None]
  - DRUG INEFFECTIVE [None]
  - MOBILITY DECREASED [None]
  - MUSCULAR WEAKNESS [None]
  - PROGRESSIVE MULTIPLE SCLEROSIS [None]
